FAERS Safety Report 19749939 (Version 2)
Quarter: 2021Q3

REPORT INFORMATION
  Report Type: Spontaneous
  Country: US (occurrence: US)
  Receive Date: 20210826
  Receipt Date: 20210830
  Transmission Date: 20211014
  Serious: Yes (Other)
  Sender: FDA-Public Use
  Company Number: US-BAYER-2021-197375

PATIENT
  Age: 38 Year
  Sex: Female

DRUGS (1)
  1. MIRENA [Suspect]
     Active Substance: LEVONORGESTREL
     Indication: CONTRACEPTION
     Dosage: 20 ?G, CONT
     Route: 015
     Dates: start: 20210126, end: 20210812

REACTIONS (5)
  - Ectopic pregnancy with contraceptive device [None]
  - Drug ineffective [None]
  - Headache [None]
  - Device issue [None]
  - Device physical property issue [None]

NARRATIVE: CASE EVENT DATE: 2021
